FAERS Safety Report 5234412-3 (Version None)
Quarter: 2007Q1

REPORT INFORMATION
  Report Type: 
  Country: None (occurrence: None)
  Receive Date: 20070207
  Receipt Date: 20070207
  Transmission Date: 20070707
  Serious: Yes (Other)
  Sender: FDA-Public Use
  Company Number: None

PATIENT
  Sex: Male
  Weight: 77 kg

DRUGS (2)
  1. TYGACIL [Suspect]
     Indication: WOUND INFECTION
     Dosage: 50MG Q12HRS IV
     Route: 042
     Dates: start: 20070112, end: 20070126
  2. TYGACIL [Suspect]
     Indication: WOUND INFECTION
     Dosage: 50MG Q12HRS IV
     Route: 042
     Dates: start: 20070126, end: 20070127

REACTIONS (3)
  - DYSPNOEA [None]
  - FEELING ABNORMAL [None]
  - INFUSION RELATED REACTION [None]
